FAERS Safety Report 20988114 (Version 1)
Quarter: 2022Q2

REPORT INFORMATION
  Report Type: Spontaneous
  Country: US (occurrence: US)
  Receive Date: 20220621
  Receipt Date: 20220621
  Transmission Date: 20220721
  Serious: No
  Sender: FDA-Public Use
  Company Number: US-PFIZER INC-202200851243

PATIENT
  Age: 33 Year
  Sex: Male

DRUGS (6)
  1. PAXLOVID [Suspect]
     Active Substance: NIRMATRELVIR\RITONAVIR
     Indication: COVID-19 treatment
     Dosage: UNK
     Dates: start: 20220614
  2. VICKS DAYQUIL [PARACETAMOL;PSEUDOEPHEDRINE HYDROCHLORIDE] [Concomitant]
     Dosage: UNK
     Dates: start: 20220612, end: 20220615
  3. MUCUS RELIEF DM [Concomitant]
     Active Substance: DEXTROMETHORPHAN HYDROBROMIDE\GUAIFENESIN
     Dosage: UNK
     Dates: start: 20220615
  4. NASAL DECONGESTANT [PSEUDOEPHEDRINE HYDROCHLORIDE] [Concomitant]
     Dosage: UNK
     Dates: start: 20220612
  5. ALEVE [Concomitant]
     Active Substance: NAPROXEN SODIUM
     Dosage: UNK
     Dates: start: 20220613, end: 20220615
  6. ATOMOXETINE [Concomitant]
     Active Substance: ATOMOXETINE
     Dosage: UNK
     Dates: start: 20210416

REACTIONS (2)
  - Urticaria [Recovering/Resolving]
  - Pustule [Recovering/Resolving]

NARRATIVE: CASE EVENT DATE: 20220615
